FAERS Safety Report 6476556-4 (Version None)
Quarter: 2009Q4

REPORT INFORMATION
  Report Type: 
  Country: None (occurrence: None)
  Receive Date: 20091207
  Receipt Date: 20091126
  Transmission Date: 20100525
  Serious: Yes (Other)
  Sender: FDA-Public Use
  Company Number: FR-KINGPHARMUSA00001-K200901491

PATIENT
  Age: 45 Year
  Sex: Male

DRUGS (2)
  1. ALTACE [Suspect]
     Dosage: UNK
     Route: 048
  2. SELOKEN [Suspect]
     Dosage: UNK

REACTIONS (2)
  - BRADYCARDIA [None]
  - HYPOTENSION [None]
